FAERS Safety Report 7333347-X (Version None)
Quarter: 2011Q1

REPORT INFORMATION
  Report Type: 
  Country: None (occurrence: None)
  Receive Date: 20110304
  Receipt Date: 20110225
  Transmission Date: 20110831
  Serious: Yes (Disabling, Other)
  Sender: FDA-Public Use
  Company Number: US-PFIZER INC-2010106947

PATIENT
  Sex: Male

DRUGS (10)
  1. EFFEXOR [Suspect]
     Dosage: 37.5 MG, 1X/DAY
     Dates: start: 20100101, end: 20100101
  2. LORAZEPAM [Concomitant]
     Indication: ANXIETY
     Dosage: 0.5 MG, AS NEEDED
  3. EFFEXOR [Suspect]
     Dosage: 75 MG, 2X/DAY
     Dates: start: 20090601, end: 20100101
  4. LISINOPRIL AND HYDROCHLOROTHIAZIDE [Concomitant]
     Indication: HYPERTENSION
     Dosage: 12.5/20 MG DAILY
  5. CETIRIZINE HYDROCHLORIDE [Concomitant]
     Indication: HYPERSENSITIVITY
     Dosage: UNK
  6. OMEPRAZOLE [Concomitant]
     Indication: DYSPEPSIA
     Dosage: UNK
  7. XANAX [Suspect]
     Dosage: 0.5 MG, 3X/DAY (AT NIGHT)
  8. EFFEXOR [Suspect]
     Dosage: 37.5 MG, ALTERNATE DAY
     Dates: start: 20100101, end: 20100515
  9. EFFEXOR [Suspect]
     Dosage: 75 MG, 1X/DAY
     Dates: start: 20100101, end: 20100101
  10. LORAZEPAM [Concomitant]
     Indication: SLEEP DISORDER

REACTIONS (14)
  - ANXIETY [None]
  - PARAESTHESIA [None]
  - INSOMNIA [None]
  - DEPRESSION [None]
  - DISTURBANCE IN ATTENTION [None]
  - RAPID EYE MOVEMENTS SLEEP ABNORMAL [None]
  - FALL [None]
  - CONTUSION [None]
  - HYPERTENSION [None]
  - TINNITUS [None]
  - WEIGHT INCREASED [None]
  - LACERATION [None]
  - FEELING ABNORMAL [None]
  - DRUG WITHDRAWAL SYNDROME [None]
